FAERS Safety Report 21052490 (Version 4)
Quarter: 2022Q3

REPORT INFORMATION
  Report Type: Spontaneous
  Country: US (occurrence: US)
  Receive Date: 20220707
  Receipt Date: 20220721
  Transmission Date: 20221027
  Serious: No
  Sender: FDA-Public Use
  Company Number: US-GLAXOSMITHKLINE-US2022AMR102573

PATIENT
  Sex: Male

DRUGS (2)
  1. ZEJULA [Suspect]
     Active Substance: NIRAPARIB
     Indication: Malignant connective tissue neoplasm
     Dosage: 300 MG, QD
     Dates: start: 20220622, end: 20220715
  2. ZEJULA [Suspect]
     Active Substance: NIRAPARIB
     Indication: Soft tissue sarcoma

REACTIONS (5)
  - Nausea [Recovering/Resolving]
  - Decreased appetite [Unknown]
  - Asthenia [Unknown]
  - Abdominal distension [Unknown]
  - Off label use [Unknown]
